FAERS Safety Report 19455300 (Version 1)
Quarter: 2021Q2

REPORT INFORMATION
  Report Type: Spontaneous
  Country: US (occurrence: US)
  Receive Date: 20210623
  Receipt Date: 20210623
  Transmission Date: 20210717
  Serious: Yes (Hospitalization)
  Sender: FDA-Public Use
  Company Number: None

PATIENT
  Sex: Male

DRUGS (18)
  1. TRAMADOL. [Concomitant]
     Active Substance: TRAMADOL
  2. DIAZEPAM. [Concomitant]
     Active Substance: DIAZEPAM
  3. MELATONIN [Concomitant]
     Active Substance: MELATONIN
  4. OCTREOTIDE. [Concomitant]
     Active Substance: OCTREOTIDE
  5. MAGNESIUM?OX [Concomitant]
  6. DIAZOXIDE [Concomitant]
     Active Substance: DIAZOXIDE
  7. TRAZODONE [Concomitant]
     Active Substance: TRAZODONE HYDROCHLORIDE
  8. DONEPEZIL. [Concomitant]
     Active Substance: DONEPEZIL
  9. CALCIUM/D3 [Concomitant]
     Active Substance: CALCIUM\CHOLECALCIFEROL
  10. LISINOPRIL. [Concomitant]
     Active Substance: LISINOPRIL
  11. OMEPRAZOLE. [Concomitant]
     Active Substance: OMEPRAZOLE
  12. TAMULOSIN [Concomitant]
     Active Substance: TAMSULOSIN
  13. ZOLPIDEM [Concomitant]
     Active Substance: ZOLPIDEM TARTRATE
  14. DIMETHYL FUM [Suspect]
     Active Substance: DIMETHYL FUMARATE
     Indication: MULTIPLE SCLEROSIS
     Route: 048
     Dates: start: 20200915
  15. MONTELUKAST [Concomitant]
     Active Substance: MONTELUKAST SODIUM
  16. BACLOFEN. [Concomitant]
     Active Substance: BACLOFEN
  17. BUT/APAP/CAF [Concomitant]
  18. LAMOTRIGINE. [Concomitant]
     Active Substance: LAMOTRIGINE

REACTIONS (3)
  - Hip fracture [None]
  - Fall [None]
  - Rib fracture [None]
